FAERS Safety Report 8587205-3 (Version None)
Quarter: 2012Q3

REPORT INFORMATION
  Report Type: 
  Country: None (occurrence: None)
  Receive Date: 20120810
  Receipt Date: 20120412
  Transmission Date: 20120928
  Serious: No
  Sender: FDA-Public Use
  Company Number: US-ASTRAZENECA-2011SE24479

PATIENT
  Age: 52 Year
  Sex: Female

DRUGS (2)
  1. ARIMIDEX [Suspect]
     Route: 048
  2. TAMOXIFEN CITRATE [Suspect]
     Route: 048

REACTIONS (9)
  - RESTLESS LEGS SYNDROME [None]
  - FATIGUE [None]
  - BLOOD OESTROGEN INCREASED [None]
  - VISUAL IMPAIRMENT [None]
  - PAIN [None]
  - VISION BLURRED [None]
  - DRUG INEFFECTIVE [None]
  - INSOMNIA [None]
  - DIZZINESS [None]
